FAERS Safety Report 6454754-3 (Version None)
Quarter: 2009Q4

REPORT INFORMATION
  Report Type: 
  Country: None (occurrence: None)
  Receive Date: 20091124
  Receipt Date: 20091119
  Transmission Date: 20100525
  Serious: Yes (Hospitalization, Other)
  Sender: FDA-Public Use
  Company Number: US-WATSON-2009-10003

PATIENT
  Age: 44 Year
  Sex: Male

DRUGS (2)
  1. TRIAMCINOLONE ACETONIDE [Suspect]
     Indication: OSTEOARTHRITIS
     Dosage: 80 MG, SINGLE
  2. RITONAVIR [Suspect]
     Indication: HIV INFECTION

REACTIONS (3)
  - HYPERGLYCAEMIA [None]
  - HYPEROSMOLAR STATE [None]
  - INHIBITORY DRUG INTERACTION [None]
